FAERS Safety Report 14166384 (Version 2)
Quarter: 2018Q3

REPORT INFORMATION
  Report Type: Spontaneous
  Country: US (occurrence: US)
  Receive Date: 20171107
  Receipt Date: 20180706
  Transmission Date: 20181010
  Serious: Yes (Death, Other)
  Sender: FDA-Public Use
  Company Number: US-ASTRAZENECA-2017SF12313

PATIENT
  Age: 19026 Day
  Sex: Male
  Weight: 99.8 kg

DRUGS (40)
  1. LEVOTHYROXINE. [Concomitant]
     Active Substance: LEVOTHYROXINE
     Dates: end: 201511
  2. METOPROLOL. [Concomitant]
     Active Substance: METOPROLOL
     Dates: start: 201506, end: 201511
  3. NEURONTIN [Concomitant]
     Active Substance: GABAPENTIN
     Indication: NEURALGIA
     Dates: end: 201511
  4. ACETAMINOPHEN. [Concomitant]
     Active Substance: ACETAMINOPHEN
     Indication: HEADACHE
  5. LASIX [Concomitant]
     Active Substance: FUROSEMIDE
  6. TRICOR [Concomitant]
     Active Substance: FENOFIBRATE
  7. NEXIUM 24HR [Suspect]
     Active Substance: ESOMEPRAZOLE MAGNESIUM
     Indication: GASTROOESOPHAGEAL REFLUX DISEASE
     Route: 048
     Dates: end: 201511
  8. PLAVIX [Concomitant]
     Active Substance: CLOPIDOGREL BISULFATE
     Dates: start: 201501, end: 201511
  9. NOVOLOG [Concomitant]
     Active Substance: INSULIN ASPART
  10. NOVOLIN [Concomitant]
     Active Substance: INSULIN HUMAN
  11. NITROGLYCERIN. [Concomitant]
     Active Substance: NITROGLYCERIN
  12. ZOCOR [Concomitant]
     Active Substance: SIMVASTATIN
  13. ALTACE [Concomitant]
     Active Substance: RAMIPRIL
  14. LIPITOR [Concomitant]
     Active Substance: ATORVASTATIN CALCIUM
  15. NEXIUM [Suspect]
     Active Substance: ESOMEPRAZOLE MAGNESIUM
     Indication: GASTROOESOPHAGEAL REFLUX DISEASE
     Route: 048
     Dates: start: 2014, end: 2015
  16. OMEPRAZOLE. [Suspect]
     Active Substance: OMEPRAZOLE
     Indication: GASTROOESOPHAGEAL REFLUX DISEASE
     Route: 048
     Dates: start: 20150928
  17. AMITRIPTYLINE [Concomitant]
     Active Substance: AMITRIPTYLINE
     Dates: start: 201501, end: 201511
  18. AMIODARONE [Concomitant]
     Active Substance: AMIODARONE
     Indication: HEART RATE IRREGULAR
     Dates: start: 201506, end: 201511
  19. AVANDIA [Concomitant]
     Active Substance: ROSIGLITAZONE MALEATE
  20. PREVACID [Concomitant]
     Active Substance: LANSOPRAZOLE
  21. COLACE [Concomitant]
     Active Substance: DOCUSATE SODIUM
  22. COREG [Concomitant]
     Active Substance: CARVEDILOL
  23. NEXIUM 24HR [Suspect]
     Active Substance: ESOMEPRAZOLE MAGNESIUM
     Indication: GASTROOESOPHAGEAL REFLUX DISEASE
     Route: 048
     Dates: start: 20141217
  24. ASPIRIN. [Concomitant]
     Active Substance: ASPIRIN
     Indication: HEADACHE
  25. BYSTOLIC [Concomitant]
     Active Substance: NEBIVOLOL HYDROCHLORIDE
  26. RANEXA [Concomitant]
     Active Substance: RANOLAZINE
  27. LOSARTAN. [Concomitant]
     Active Substance: LOSARTAN
  28. LOVENOX [Concomitant]
     Active Substance: ENOXAPARIN SODIUM
  29. OXYCODONE [Concomitant]
     Active Substance: OXYCODONE
  30. IMDUR [Concomitant]
     Active Substance: ISOSORBIDE MONONITRATE
  31. OXYCODONE/ACETAMINOPHEN [Concomitant]
     Active Substance: ACETAMINOPHEN\OXYCODONE HYDROCHLORIDE
     Indication: PAIN
     Dates: start: 201501, end: 201511
  32. SPIRONOLACTONE. [Concomitant]
     Active Substance: SPIRONOLACTONE
     Indication: DIVERTICULITIS
     Dates: end: 201511
  33. CIMETIDINE [Concomitant]
     Active Substance: CIMETIDINE
  34. ZANTAC [Concomitant]
     Active Substance: RANITIDINE HYDROCHLORIDE
  35. HYZAAR [Concomitant]
     Active Substance: HYDROCHLOROTHIAZIDE\LOSARTAN POTASSIUM
  36. PRILOSEC OTC [Suspect]
     Active Substance: OMEPRAZOLE MAGNESIUM
     Indication: GASTROOESOPHAGEAL REFLUX DISEASE
     Route: 048
  37. TIZANIDINE. [Concomitant]
     Active Substance: TIZANIDINE
     Dates: start: 201501, end: 201511
  38. EICOSAPENTAENOIC ACID [Concomitant]
     Active Substance: ICOSAPENT
  39. PEPCID [Concomitant]
     Active Substance: FAMOTIDINE
  40. ISOPHANE INSULIN [Concomitant]
     Active Substance: INSULIN NOS

REACTIONS (6)
  - Chronic left ventricular failure [Unknown]
  - Myocardial infarction [Fatal]
  - Ischaemic cardiomyopathy [Unknown]
  - Acute kidney injury [Fatal]
  - Cardiac failure congestive [Unknown]
  - Chronic kidney disease [Fatal]

NARRATIVE: CASE EVENT DATE: 20150928
